FAERS Safety Report 14203280 (Version 2)
Quarter: 2018Q2

REPORT INFORMATION
  Report Type: Spontaneous
  Country: JP (occurrence: JP)
  Receive Date: 20171120
  Receipt Date: 20180402
  Transmission Date: 20180711
  Serious: Yes (Other)
  Sender: FDA-Public Use
  Company Number: JP-ACCORD-061132

PATIENT
  Age: 70 Year
  Sex: Male

DRUGS (10)
  1. RITUXIMAB. [Concomitant]
     Active Substance: RITUXIMAB
  2. VINCRISTINE [Concomitant]
     Active Substance: VINCRISTINE
  3. GEMCITABINE/GEMCITABINE HYDROCHLORIDE [Suspect]
     Active Substance: GEMCITABINE\GEMCITABINE HYDROCHLORIDE
     Indication: DIFFUSE LARGE B-CELL LYMPHOMA
     Dosage: DOSE: 1,500 MG DILUTED IN 250 ML 5% GLUCOSE FOR 2 HOURS
     Route: 042
  4. CYCLOPHOSPHAMIDE/CYCLOPHOSPHAMIDE MONOHYDRATE [Concomitant]
  5. CISPLATIN. [Suspect]
     Active Substance: CISPLATIN
     Indication: DIFFUSE LARGE B-CELL LYMPHOMA
     Dosage: 110 MG DILUTED IN 500 ML 0.9% SALINE FOR 6 HOURS
     Route: 042
  6. DEXAMETHASONE. [Suspect]
     Active Substance: DEXAMETHASONE
     Indication: DIFFUSE LARGE B-CELL LYMPHOMA
     Dosage: 40 MG DILUTED IN 100 ML 0.9% SALINE FOR 30 MIN
     Route: 042
  7. PIRARUBICIN [Concomitant]
     Active Substance: PIRARUBICIN
  8. DOXORUBICIN [Concomitant]
     Active Substance: DOXORUBICIN
  9. PREDNISONE. [Concomitant]
     Active Substance: PREDNISONE
  10. PALONOSETRON/PALONOSETRON HYDROCHLORIDE [Concomitant]
     Indication: ANTIEMETIC SUPPORTIVE CARE
     Route: 042

REACTIONS (2)
  - Skin necrosis [Recovered/Resolved]
  - Administration site extravasation [Recovered/Resolved]
